FAERS Safety Report 9856212 (Version 3)
Quarter: 2014Q2

REPORT INFORMATION
  Report Type: Spontaneous
  Country: US (occurrence: US)
  Receive Date: 20140130
  Receipt Date: 20140624
  Transmission Date: 20141212
  Serious: Yes (Other)
  Sender: FDA-Public Use
  Company Number: US-PFIZER INC-2014026909

PATIENT
  Age: 74 Year
  Sex: Female

DRUGS (3)
  1. LIPITOR [Suspect]
     Indication: LOW DENSITY LIPOPROTEIN INCREASED
     Dosage: 10 MG TO 40 MG, DAILY
     Route: 048
     Dates: start: 20000719, end: 20110106
  2. LIPITOR [Suspect]
     Indication: CARDIOVASCULAR EVENT PROPHYLAXIS
  3. LASIX [Concomitant]
     Indication: NEPHROPATHY
     Dosage: 20 MG TO 40 MG, DAILY
     Dates: start: 19940809

REACTIONS (1)
  - Type 2 diabetes mellitus [Not Recovered/Not Resolved]
